FAERS Safety Report 4751146-X (Version None)
Quarter: 2005Q3

REPORT INFORMATION
  Report Type: 
  Country: None (occurrence: None)
  Receive Date: 20050822
  Receipt Date: 20050808
  Transmission Date: 20060218
  Serious: Yes (Death, Hospitalization)
  Sender: FDA-Public Use
  Company Number: CLOF-10081

PATIENT
  Age: 68 Year
  Sex: Male

DRUGS (3)
  1. CLOFARABINE [Suspect]
     Dosage: 54 MG QD X 5 IV
     Route: 042
     Dates: start: 20040708, end: 20040712
  2. COTRIMOXAZOLE [Concomitant]
  3. ALLOPURINOL [Concomitant]

REACTIONS (2)
  - NEUTROPENIC SEPSIS [None]
  - THROMBOCYTOPENIA [None]
